FAERS Safety Report 5407078-7 (Version None)
Quarter: 2007Q3

REPORT INFORMATION
  Report Type: 
  Country: None (occurrence: None)
  Receive Date: 20070807
  Receipt Date: 20070730
  Transmission Date: 20080115
  Serious: Yes (Other)
  Sender: FDA-Public Use
  Company Number: PT-JNJFOC-20070704085

PATIENT
  Age: 30 Year
  Sex: Male

DRUGS (3)
  1. RISPERDAL CONSTA [Suspect]
     Indication: SCHIZOPHRENIA
     Route: 030
  2. ALPRAZOLAM [Concomitant]
  3. COMTAN [Concomitant]

REACTIONS (1)
  - MYASTHENIA GRAVIS [None]
